FAERS Safety Report 6531183-5 (Version None)
Quarter: 2010Q1

REPORT INFORMATION
  Report Type: 
  Country: None (occurrence: None)
  Receive Date: 20100108
  Receipt Date: 20100104
  Transmission Date: 20100710
  Serious: Yes (Other)
  Sender: FDA-Public Use
  Company Number: CA-JNJFOC-20090403609

PATIENT
  Sex: Male
  Weight: 95 kg

DRUGS (11)
  1. REMICADE [Suspect]
     Route: 042
  2. REMICADE [Suspect]
     Route: 042
  3. REMICADE [Suspect]
     Route: 042
  4. REMICADE [Suspect]
     Route: 042
  5. REMICADE [Suspect]
     Indication: CROHN'S DISEASE
     Route: 042
  6. QUESTRAN [Concomitant]
  7. SYMBICORT [Concomitant]
  8. LOSEC [Concomitant]
  9. CIPRO [Concomitant]
  10. IMODIUM [Concomitant]
  11. CYMBALTA [Concomitant]

REACTIONS (2)
  - ALCOHOLIC PANCREATITIS [None]
  - HEPATITIS [None]
